FAERS Safety Report 5520157-9 (Version None)
Quarter: 2007Q4

REPORT INFORMATION
  Report Type: 
  Country: None (occurrence: None)
  Receive Date: 20071116
  Receipt Date: 20071115
  Transmission Date: 20080405
  Serious: Yes (Hospitalization)
  Sender: FDA-Public Use
  Company Number: US-BOEHRINGER INGELHEIM PHARMACEUTICALS, INC.-2007-BP-24574BP

PATIENT
  Sex: Male

DRUGS (1)
  1. SPIRIVA [Suspect]
     Indication: CHRONIC OBSTRUCTIVE PULMONARY DISEASE
     Route: 055
     Dates: start: 20010101

REACTIONS (5)
  - BLOOD POTASSIUM INCREASED [None]
  - INFLAMMATION [None]
  - PROSTATIC DISORDER [None]
  - PROSTATOMEGALY [None]
  - PROTEIN TOTAL INCREASED [None]
